FAERS Safety Report 4364690-4 (Version None)
Quarter: 2004Q2

REPORT INFORMATION
  Report Type: 
  Country: None (occurrence: None)
  Receive Date: 20040524
  Receipt Date: 20040524
  Transmission Date: 20050107
  Serious: Yes (Other)
  Sender: FDA-Public Use
  Company Number: None

PATIENT
  Age: 59 Year
  Sex: Female
  Weight: 109.7705 kg

DRUGS (2)
  1. NIFEDIPINE [Suspect]
     Indication: CARDIAC DISORDER
     Dosage: SEE IMAGE
  2. NIFEDIPINE [Suspect]
     Indication: HYPERTENSION
     Dosage: SEE IMAGE

REACTIONS (2)
  - DIZZINESS [None]
  - HEADACHE [None]
